FAERS Safety Report 5257116-X (Version None)
Quarter: 2007Q1

REPORT INFORMATION
  Report Type: 
  Country: None (occurrence: None)
  Receive Date: 20070302
  Receipt Date: 20060403
  Transmission Date: 20070707
  Serious: Yes (Hospitalization)
  Sender: FDA-Public Use
  Company Number: DSA_29408_2007

PATIENT
  Age: 49 Year
  Sex: Female

DRUGS (9)
  1. MONO-TILDIEM [Suspect]
     Dosage: 300 MG Q DAY PO
     Route: 048
  2. LASIX [Suspect]
     Indication: ESSENTIAL HYPERTENSION
     Dosage: 40 MG QD PO
     Route: 048
  3. VENTOLINE /00139501/ [Suspect]
     Indication: ASTHMA
     Dosage: DF
  4. SERETIDE /01420901/ [Suspect]
     Indication: ASTHMA
     Dosage: DF
  5. EZETROL [Suspect]
     Indication: HYPERCHOLESTEROLAEMIA
     Dosage: 10 MG QD PO
     Route: 048
     Dates: start: 20050901, end: 20060204
  6. ZOLPIDEM [Suspect]
     Indication: SLEEP DISORDER
     Dosage: DF PO
     Route: 048
  7. DISCOTRINE [Suspect]
     Dosage: 10 MG PAT
     Route: 060
  8. KARDEGIC [Concomitant]
  9. DAFALGAN [Concomitant]

REACTIONS (3)
  - BLOOD CREATINE PHOSPHOKINASE INCREASED [None]
  - MYALGIA [None]
  - RENAL IMPAIRMENT [None]
